FAERS Safety Report 21589858 (Version 1)
Quarter: 2022Q4

REPORT INFORMATION
  Report Type: Spontaneous
  Country: US (occurrence: None)
  Receive Date: 20221112
  Receipt Date: 20221112
  Transmission Date: 20230113
  Serious: No
  Sender: FDA-Public Use
  Company Number: None

PATIENT
  Age: 40 Year
  Sex: Female
  Weight: 126 kg

DRUGS (9)
  1. PAXLOVID [Suspect]
     Active Substance: NIRMATRELVIR\RITONAVIR
     Indication: SARS-CoV-2 test positive
     Dosage: FREQUENCY : TWICE A DAY;?
     Route: 048
     Dates: start: 20221110, end: 20221111
  2. OMEPRAZOLE [Concomitant]
     Active Substance: OMEPRAZOLE
  3. DULOXETINE [Concomitant]
     Active Substance: DULOXETINE
  4. ZYRTEC [Concomitant]
     Active Substance: CETIRIZINE HYDROCHLORIDE
  5. BUSPAR [Concomitant]
     Active Substance: BUSPIRONE HYDROCHLORIDE
  6. GABAPENTIN [Concomitant]
     Active Substance: GABAPENTIN
  7. DEVICE [Concomitant]
     Active Substance: DEVICE
  8. PROMETHAZINE [Concomitant]
     Active Substance: PROMETHAZINE HYDROCHLORIDE
  9. TYLENOL [Concomitant]
     Active Substance: ACETAMINOPHEN

REACTIONS (9)
  - Dysgeusia [None]
  - Dizziness [None]
  - Nausea [None]
  - Diarrhoea [None]
  - Vomiting [None]
  - Dysgeusia [None]
  - Headache [None]
  - Drug ineffective [None]
  - Blood pressure diastolic increased [None]

NARRATIVE: CASE EVENT DATE: 20221111
